FAERS Safety Report 17816044 (Version 1)
Quarter: 2020Q2

REPORT INFORMATION
  Report Type: Spontaneous
  Country: SE (occurrence: SE)
  Receive Date: 20200522
  Receipt Date: 20200522
  Transmission Date: 20200714
  Serious: Yes (Other)
  Sender: FDA-Public Use
  Company Number: SE-TEVA-2020-SE-1238188

PATIENT
  Age: 90 Year
  Sex: Male

DRUGS (1)
  1. DIAZEPAM. [Suspect]
     Active Substance: DIAZEPAM
     Indication: ANXIETY
     Dosage: 2.5 MG ON TWO OCCASIONS DURING THE SAME NIGHT
     Route: 042
     Dates: start: 20200505, end: 20200505

REACTIONS (4)
  - Dysarthria [Recovered/Resolved]
  - Confusional state [Recovered/Resolved]
  - Incorrect dose administered [Recovered/Resolved]
  - Sedation complication [Recovered/Resolved]

NARRATIVE: CASE EVENT DATE: 20200505
